FAERS Safety Report 24944952 (Version 1)
Quarter: 2025Q1

REPORT INFORMATION
  Report Type: Spontaneous
  Country: US (occurrence: US)
  Receive Date: 20250208
  Receipt Date: 20250208
  Transmission Date: 20250409
  Serious: No
  Sender: ABBVIE
  Company Number: US-ABBVIE-6124195

PATIENT
  Age: 79 Year
  Sex: Female

DRUGS (1)
  1. CREON [Suspect]
     Active Substance: PANCRELIPASE AMYLASE\PANCRELIPASE LIPASE\PANCRELIPASE PROTEASE
     Indication: Pancreatic enzymes abnormal
     Route: 048
     Dates: start: 20250201

REACTIONS (3)
  - Off label use [Unknown]
  - Confusional state [Unknown]
  - Fear [Unknown]

NARRATIVE: CASE EVENT DATE: 20240201
